FAERS Safety Report 23060619 (Version 3)
Quarter: 2024Q2

REPORT INFORMATION
  Report Type: Spontaneous
  Country: PT (occurrence: PT)
  Receive Date: 20231012
  Receipt Date: 20240502
  Transmission Date: 20240715
  Serious: Yes (Other)
  Sender: FDA-Public Use
  Company Number: None

PATIENT
  Age: 15 Year
  Sex: Female
  Weight: 50 kg

DRUGS (1)
  1. DOXYCYCLINE [Suspect]
     Active Substance: DOXYCYCLINE
     Indication: Acne
     Dosage: 1 TABLET PER DAY AT BEDTIME 1 MONTH
     Route: 048
     Dates: start: 20230202, end: 20230306

REACTIONS (1)
  - Chillblains [Recovered/Resolved]

NARRATIVE: CASE EVENT DATE: 20230306
